FAERS Safety Report 13194071 (Version 1)
Quarter: 2017Q1

REPORT INFORMATION
  Report Type: Report from Study
  Country: CA (occurrence: CA)
  Receive Date: 20170207
  Receipt Date: 20170207
  Transmission Date: 20170428
  Serious: Yes (Hospitalization)
  Sender: FDA-Public Use
  Company Number: CA-HLSUS-2017-CA-000111

PATIENT
  Sex: Male

DRUGS (1)
  1. CLOZARIL [Suspect]
     Active Substance: CLOZAPINE
     Route: 048
     Dates: start: 20110425, end: 20170202

REACTIONS (5)
  - Hepatic steatosis [Unknown]
  - Hepatic cyst [Unknown]
  - Renal cyst [Unknown]
  - Pericardial effusion [Unknown]
  - Pericarditis [Unknown]
